FAERS Safety Report 17750015 (Version 1)
Quarter: 2020Q2

REPORT INFORMATION
  Report Type: Spontaneous
  Country: CN (occurrence: CN)
  Receive Date: 20200506
  Receipt Date: 20200506
  Transmission Date: 20200714
  Serious: Yes (Other)
  Sender: FDA-Public Use
  Company Number: CN-ROCHE-2592301

PATIENT
  Age: 71 Year
  Sex: Female

DRUGS (14)
  1. TOREMIFENE [Concomitant]
     Active Substance: TOREMIFENE
     Indication: BREAST CANCER
  2. TOREMIFENE [Concomitant]
     Active Substance: TOREMIFENE
     Indication: METASTATIC NEOPLASM
     Route: 065
  3. PALBOCICLIB [Concomitant]
     Active Substance: PALBOCICLIB
     Indication: BREAST CANCER
     Route: 065
  4. ANASTROZOLE. [Concomitant]
     Active Substance: ANASTROZOLE
     Indication: BREAST CANCER
  5. XELODA [Suspect]
     Active Substance: CAPECITABINE
     Indication: COLON CANCER
     Dosage: DAY 1-14, EVERY 21 DAYS AS ONE CYCLE
     Route: 048
     Dates: start: 2018
  6. GIMERACIL;OTERACIL POTASSIUM;TEGAFUR [Concomitant]
     Active Substance: GIMERACIL\OTERACIL\TEGAFUR
     Indication: COLON CANCER
     Dosage: DAY 1-14, EVERY 21 DAYS AS ONE CYCLE
     Route: 048
     Dates: start: 2018
  7. ALBUMIN [Concomitant]
     Active Substance: ALBUMIN HUMAN
  8. PACLITAXEL. [Concomitant]
     Active Substance: PACLITAXEL
  9. HERCEPTIN [Suspect]
     Active Substance: TRASTUZUMAB
     Indication: COLON CANCER
     Dosage: INITIAL 248 MG, FOLLOW BY 124 MG
     Route: 065
  10. OXALIPLATIN. [Concomitant]
     Active Substance: OXALIPLATIN
     Indication: COLON CANCER
     Dosage: DAY 1
     Route: 041
     Dates: start: 2018
  11. PALBOCICLIB [Concomitant]
     Active Substance: PALBOCICLIB
     Indication: METASTATIC NEOPLASM
  12. XELODA [Suspect]
     Active Substance: CAPECITABINE
     Dosage: DAY 1-14, EVERY 21 DAYS AS ONE CYCLE, 1.0 G AT MORNING, 1.5 G AT NIGHT, 5CYCLES
     Route: 048
     Dates: start: 2018
  13. OXALIPLATIN. [Concomitant]
     Active Substance: OXALIPLATIN
     Dosage: DAY 1
     Route: 041
     Dates: start: 2018
  14. ANASTROZOLE. [Concomitant]
     Active Substance: ANASTROZOLE
     Indication: METASTATIC NEOPLASM

REACTIONS (8)
  - Diarrhoea [Unknown]
  - Asthenia [Unknown]
  - Pneumonitis [Unknown]
  - Sinus tachycardia [Recovering/Resolving]
  - Bone marrow failure [Unknown]
  - Neurotoxicity [Unknown]
  - Palmar-plantar erythrodysaesthesia syndrome [Unknown]
  - Dyspnoea [Recovering/Resolving]
